FAERS Safety Report 8826742 (Version 2)
Quarter: 2012Q4

REPORT INFORMATION
  Report Type: 
  Country: US (occurrence: US)
  Receive Date: 20121005
  Receipt Date: 20121018
  Transmission Date: 20130627
  Serious: Yes (Other)
  Sender: FDA-Public Use
  Company Number: CHPA2012US020527

PATIENT
  Age: 65 Year
  Sex: Male

DRUGS (1)
  1. 4 WAY MENTHOLATED NASAL SPRAY [Suspect]
     Indication: SINUS DISORDER
     Dosage: Unk, 3 TIMES A DAY AS NEEDED
     Route: 045
     Dates: start: 1985

REACTIONS (2)
  - Sinusitis [Recovered/Resolved]
  - Off label use [Unknown]
